FAERS Safety Report 9504359 (Version 1)
Quarter: 2013Q3

REPORT INFORMATION
  Report Type: Spontaneous
  Country: CN (occurrence: CN)
  Receive Date: 20130906
  Receipt Date: 20130906
  Transmission Date: 20140515
  Serious: Yes (Hospitalization)
  Sender: FDA-Public Use
  Company Number: CN-009507513-1309CHN000890

PATIENT
  Age: 32 Year
  Sex: Male
  Weight: 70 kg

DRUGS (1)
  1. TIENAM [Suspect]
     Dosage: 1000MG TID,
     Route: 041
     Dates: start: 20121013, end: 20121016

REACTIONS (1)
  - Anaphylactoid reaction [Recovered/Resolved]
